FAERS Safety Report 4836427-3 (Version None)
Quarter: 2005Q4

REPORT INFORMATION
  Report Type: 
  Country: None (occurrence: None)
  Receive Date: 20051118
  Receipt Date: 20051107
  Transmission Date: 20060501
  Serious: Yes (Hospitalization, Other)
  Sender: FDA-Public Use
  Company Number: HQWYE499810NOV05

PATIENT
  Age: 46 Year
  Sex: Male

DRUGS (7)
  1. RAPAMUME (SIROLIMUS, TABLET) [Suspect]
     Indication: PROPHYLAXIS AGAINST TRANSPLANT REJECTION
     Dosage: 2 MG 1X PER 1 DAY, 3 MG 1X PER 1 DAY, 5 MG 1X PER 1 DAY
     Route: 048
     Dates: start: 20050306, end: 20050324
  2. RAPAMUME (SIROLIMUS, TABLET) [Suspect]
     Indication: PROPHYLAXIS AGAINST TRANSPLANT REJECTION
     Dosage: 2 MG 1X PER 1 DAY, 3 MG 1X PER 1 DAY, 5 MG 1X PER 1 DAY
     Route: 048
     Dates: start: 20050325, end: 20050413
  3. RAPAMUME (SIROLIMUS, TABLET) [Suspect]
     Indication: PROPHYLAXIS AGAINST TRANSPLANT REJECTION
     Dosage: 2 MG 1X PER 1 DAY, 3 MG 1X PER 1 DAY, 5 MG 1X PER 1 DAY
     Route: 048
     Dates: start: 20050617, end: 20050706
  4. RAPAMUME (SIROLIMUS, TABLET) [Suspect]
     Indication: PROPHYLAXIS AGAINST TRANSPLANT REJECTION
     Dosage: 2 MG 1X PER 1 DAY, 3 MG 1X PER 1 DAY, 5 MG 1X PER 1 DAY
     Route: 048
     Dates: start: 20050707
  5. CYCLOSPORINE [Concomitant]
  6. PREDNISONE [Concomitant]
  7. SULFAMETHOXAZOLE + TRIMETHOPRIM [Concomitant]

REACTIONS (4)
  - BLOOD CREATININE INCREASED [None]
  - HAEMODIALYSIS [None]
  - KIDNEY TRANSPLANT REJECTION [None]
  - RENAL TUBULAR NECROSIS [None]
